FAERS Safety Report 7243152-0 (Version None)
Quarter: 2011Q1

REPORT INFORMATION
  Report Type: 
  Country: None (occurrence: None)
  Receive Date: 20110118
  Receipt Date: 20110107
  Transmission Date: 20110831
  Serious: Yes (Other)
  Sender: FDA-Public Use
  Company Number: 2011MA000209

PATIENT
  Age: 45 Year
  Sex: Female

DRUGS (10)
  1. OXYTETRACYCLINE [Concomitant]
  2. CLINDAMYCIN [Concomitant]
  3. TRAMADOL HCL [Concomitant]
  4. DIAZEPAM [Concomitant]
  5. FERROUS GLUCONATE [Concomitant]
  6. DICLOFENAC [Concomitant]
  7. ALGESAL [Concomitant]
  8. ACETAMINOPHEN AND CODEINE PHOSPHATE [Suspect]
     Dosage: 120MG/12MG PER 5 ML
     Dates: start: 20101229
  9. ERGOCALCIFEROL [Concomitant]
  10. ZOPICLONE [Concomitant]

REACTIONS (1)
  - CIRCULATORY COLLAPSE [None]
